FAERS Safety Report 11824017 (Version 1)
Quarter: 2015Q4

REPORT INFORMATION
  Report Type: Spontaneous
  Country: US (occurrence: US)
  Receive Date: 20151210
  Receipt Date: 20151210
  Transmission Date: 20160305
  Serious: Yes (Hospitalization)
  Sender: FDA-Public Use
  Company Number: US-LPDUSPRD-20150672

PATIENT
  Age: 70 Year
  Sex: Female

DRUGS (1)
  1. VENOFER [Suspect]
     Active Substance: IRON SUCROSE
     Dosage: 1 GM IN 1 DOSE OVER 4-5 HRS
     Route: 065

REACTIONS (2)
  - Hypotension [Unknown]
  - Incorrect dose administered [Unknown]
